FAERS Safety Report 8602703-1 (Version None)
Quarter: 2012Q3

REPORT INFORMATION
  Report Type: 
  Country: None (occurrence: None)
  Receive Date: 20120817
  Receipt Date: 20120807
  Transmission Date: 20120928
  Serious: Yes (Hospitalization)
  Sender: FDA-Public Use
  Company Number: CN-B.I. PHARMACEUTICALS,INC./RIDGEFIELD-2012-BP-19326BP

PATIENT
  Sex: Female
  Weight: 50 kg

DRUGS (1)
  1. IPRATROPIUM BROMIDE [Suspect]
     Indication: PNEUMONIA MYCOPLASMAL
     Dosage: 5 ML
     Route: 055
     Dates: start: 20111005, end: 20111005

REACTIONS (2)
  - EXTRAPYRAMIDAL DISORDER [None]
  - TACHYCARDIA [None]
